FAERS Safety Report 9993429 (Version 1)
Quarter: 2014Q1

REPORT INFORMATION
  Report Type: Spontaneous
  Country: US (occurrence: US)
  Receive Date: 20140310
  Receipt Date: 20140310
  Transmission Date: 20141002
  Serious: Yes (Other)
  Sender: FDA-Public Use
  Company Number: US-PFIZER INC-2014065574

PATIENT
  Sex: Male

DRUGS (4)
  1. LIPITOR [Suspect]
     Indication: BLOOD CHOLESTEROL INCREASED
     Dosage: UNK
     Route: 048
  2. LIPITOR [Suspect]
     Dosage: UNK
     Route: 048
     Dates: start: 2013
  3. LISINOPRIL W/HYDROCHLOROTHIAZIDE [Concomitant]
     Indication: HYPERTENSION
     Dosage: UNK
  4. VITAMIN D [Concomitant]
     Dosage: UNK

REACTIONS (8)
  - Rhabdomyolysis [Unknown]
  - Muscle atrophy [Unknown]
  - Cognitive disorder [Unknown]
  - Memory impairment [Unknown]
  - Tremor [Unknown]
  - Muscular weakness [Unknown]
  - Myalgia [Unknown]
  - Asthenia [Unknown]
